FAERS Safety Report 23571272 (Version 7)
Quarter: 2025Q3

REPORT INFORMATION
  Report Type: Spontaneous
  Country: EU (occurrence: EU)
  Receive Date: 20240227
  Receipt Date: 20250729
  Transmission Date: 20251021
  Serious: Yes (Death, Life-Threatening, Hospitalization, Other)
  Sender: SANDOZ
  Company Number: EU-002147023-NVSC2019DE060731

PATIENT
  Age: 63 Year
  Sex: Female
  Weight: 73 kg

DRUGS (31)
  1. ARIMIDEX [Suspect]
     Active Substance: ANASTROZOLE
     Indication: Breast cancer metastatic
     Dosage: 1 MG, QD  06-NOV-2019 00:00
     Route: 048
     Dates: end: 20191123
  2. ELIQUIS [Suspect]
     Active Substance: APIXABAN
     Indication: Thrombosis
     Route: 065
  3. ELIQUIS [Suspect]
     Active Substance: APIXABAN
     Indication: Thrombosis
  4. FULVESTRANT [Suspect]
     Active Substance: FULVESTRANT
     Indication: Breast cancer metastatic
     Dosage: 250 MG, Q4W (LAST ADMINISTARTION DOSE DATE WAS 06 JAN 2021)06-JAN-2020 00:00
     Route: 030
  5. FULVESTRANT [Suspect]
     Active Substance: FULVESTRANT
     Route: 065
     Dates: start: 20220321
  6. KISQALI [Suspect]
     Active Substance: RIBOCICLIB SUCCINATE
     Indication: Breast cancer metastatic
     Dosage: 600 MG, QD (SCHEMA 21 DAYS INTAKE, 7 DAYS PAUSE)  06-NOV-2019 00:00
     Route: 048
     Dates: end: 20191123
  7. KISQALI [Suspect]
     Active Substance: RIBOCICLIB SUCCINATE
     Indication: Breast cancer metastatic
     Route: 048
     Dates: start: 20191106, end: 20191123
  8. PIPERACILLIN SODIUM\TAZOBACTAM SODIUM [Suspect]
     Active Substance: PIPERACILLIN SODIUM\TAZOBACTAM SODIUM
     Indication: Breast cancer metastatic
     Dosage: 3 DOSAGE FORM, TID,START  DATE-24-NOV-2019
     Route: 058
     Dates: end: 20191129
  9. DEXAMETHASONE [Concomitant]
     Active Substance: DEXAMETHASONE
     Indication: Product used for unknown indication
     Dosage: 0.5 DF, BID
     Route: 048
     Dates: start: 20191016
  10. DEXAMETHASONE [Concomitant]
     Active Substance: DEXAMETHASONE
     Dosage: 0.5 DF, BID
     Route: 048
     Dates: start: 20191016
  11. POLYETHYLENE GLYCOLS [Concomitant]
     Active Substance: POLYETHYLENE GLYCOLS
     Indication: Constipation
     Dosage: 1 DF, QD
     Route: 048
     Dates: start: 20191023
  12. POLYETHYLENE GLYCOLS [Concomitant]
     Active Substance: POLYETHYLENE GLYCOLS
     Indication: Product used for unknown indication
  13. Novalgin [Concomitant]
     Indication: Pain
     Dosage: 500 MG, QID
     Route: 048
     Dates: start: 20191016
  14. METAMIZOLE [Concomitant]
     Active Substance: METAMIZOLE
     Indication: Pain
     Dosage: 500 MG, QD
     Route: 048
     Dates: start: 20191016
  15. OXYCODONE [Concomitant]
     Active Substance: OXYCODONE
     Indication: Pain
     Dosage: 10 MG, QD
     Route: 048
     Dates: start: 20191030
  16. OXYCODONE [Concomitant]
     Active Substance: OXYCODONE
     Indication: Product used for unknown indication
  17. PALBOCICLIB [Concomitant]
     Active Substance: PALBOCICLIB
     Indication: Product used for unknown indication
     Route: 065
     Dates: start: 20191016
  18. PALBOCICLIB [Concomitant]
     Active Substance: PALBOCICLIB
     Route: 065
  19. PALBOCICLIB [Concomitant]
     Active Substance: PALBOCICLIB
     Route: 065
  20. PALBOCICLIB [Concomitant]
     Active Substance: PALBOCICLIB
     Route: 065
  21. PALBOCICLIB [Concomitant]
     Active Substance: PALBOCICLIB
     Route: 065
  22. PALBOCICLIB [Concomitant]
     Active Substance: PALBOCICLIB
     Route: 065
  23. PALBOCICLIB [Concomitant]
     Active Substance: PALBOCICLIB
     Route: 065
  24. PALBOCICLIB [Concomitant]
     Active Substance: PALBOCICLIB
     Route: 065
  25. PALBOCICLIB [Concomitant]
     Active Substance: PALBOCICLIB
     Route: 065
  26. PALBOCICLIB [Concomitant]
     Active Substance: PALBOCICLIB
     Route: 065
  27. PALBOCICLIB [Concomitant]
     Active Substance: PALBOCICLIB
     Route: 065
  28. PALBOCICLIB [Concomitant]
     Active Substance: PALBOCICLIB
     Route: 065
  29. PANTOPRAZOLE [Concomitant]
     Active Substance: PANTOPRAZOLE
     Indication: Prophylaxis
     Dosage: 40 MG, QD
     Route: 048
     Dates: start: 20191016
  30. XGEVA [Concomitant]
     Active Substance: DENOSUMAB
     Indication: Product used for unknown indication
     Route: 065
     Dates: start: 20200117
  31. XGEVA [Concomitant]
     Active Substance: DENOSUMAB
     Route: 065
     Dates: start: 20200117

REACTIONS (25)
  - Neoplasm [Fatal]
  - Acute hepatic failure [Unknown]
  - General physical health deterioration [Recovered/Resolved]
  - Ascites [Recovering/Resolving]
  - Ovarian cancer [Recovering/Resolving]
  - Thrombocytopenia [Recovered/Resolved]
  - Hypersensitivity [Recovered/Resolved]
  - Thrombocytopenia [Not Recovered/Not Resolved]
  - Pruritus [Recovered/Resolved]
  - Hypersensitivity [Recovered/Resolved]
  - Pyrexia [Recovered/Resolved]
  - Rash [Recovered/Resolved]
  - Vomiting [Recovered/Resolved]
  - Diarrhoea [Recovered/Resolved]
  - Thrombosis [Recovering/Resolving]
  - Pancytopenia [Recovered/Resolved]
  - White blood cell disorder [Recovered/Resolved]
  - Second primary malignancy [Unknown]
  - Haemoglobin decreased [Recovered/Resolved]
  - Hepatic cyst [Unknown]
  - Dysphagia [Recovered/Resolved]
  - Pleural effusion [Unknown]
  - Dysphagia [Unknown]
  - Fatigue [Unknown]
  - Nausea [Recovered/Resolved]

NARRATIVE: CASE EVENT DATE: 20191030
